FAERS Safety Report 9816017 (Version 2)
Quarter: 2014Q1

REPORT INFORMATION
  Report Type: Spontaneous
  Country: US (occurrence: US)
  Receive Date: 20140114
  Receipt Date: 20140123
  Transmission Date: 20141002
  Serious: Yes (Death)
  Sender: FDA-Public Use
  Company Number: US-PFIZER INC-2014006626

PATIENT
  Age: 42 Year
  Sex: Female

DRUGS (11)
  1. FENTANYL [Suspect]
  2. MORPHINE SULFATE [Suspect]
  3. ALPRAZOLAM [Suspect]
  4. LEVOTHYROXINE SODIUM [Suspect]
  5. DOXEPIN HYDROCHLORIDE [Suspect]
  6. CITALOPRAM [Suspect]
  7. HYDROMORPHONE [Suspect]
  8. ACETAMINOPHEN/OXYCODONE [Suspect]
  9. CLONAZEPAM [Suspect]
  10. TAPENTADOL [Suspect]
  11. MELOXICAM [Suspect]

REACTIONS (3)
  - Completed suicide [Fatal]
  - Cardiac arrest [Fatal]
  - Respiratory arrest [Fatal]
